FAERS Safety Report 18999774 (Version 3)
Quarter: 2021Q2

REPORT INFORMATION
  Report Type: Spontaneous
  Country: US (occurrence: US)
  Receive Date: 20210311
  Receipt Date: 20210429
  Transmission Date: 20210717
  Serious: No
  Sender: FDA-Public Use
  Company Number: NVSC2021US049015

PATIENT
  Sex: Female

DRUGS (1)
  1. XIIDRA [Suspect]
     Active Substance: LIFITEGRAST
     Indication: DRY EYE
     Dosage: 1 DRP, BID (1 DROP BOTH EYE)
     Route: 065

REACTIONS (5)
  - Nasopharyngitis [Unknown]
  - Visual impairment [Unknown]
  - Incorrect dose administered [Unknown]
  - Product delivery mechanism issue [Unknown]
  - Eye irritation [Unknown]
